FAERS Safety Report 6211539-0 (Version None)
Quarter: 2009Q2

REPORT INFORMATION
  Report Type: 
  Country: None (occurrence: None)
  Receive Date: 20090602
  Receipt Date: 20090525
  Transmission Date: 20091009
  Serious: Yes (Death, Other)
  Sender: FDA-Public Use
  Company Number: CH-JNJFOC-20090505547

PATIENT
  Age: 40 Year
  Sex: Male

DRUGS (3)
  1. HALDOL [Suspect]
     Indication: AGGRESSION
     Route: 030
  2. RISPERDAL [Suspect]
     Indication: PSYCHOTIC DISORDER
     Dosage: SINCE YEARS
     Route: 048
  3. TALOFEN [Interacting]
     Indication: PSYCHOTIC DISORDER
     Route: 030

REACTIONS (5)
  - ACIDOSIS [None]
  - CARDIO-RESPIRATORY ARREST [None]
  - DRUG INTERACTION [None]
  - ELECTROCARDIOGRAM QT PROLONGED [None]
  - RHABDOMYOLYSIS [None]
